FAERS Safety Report 5512453-6 (Version None)
Quarter: 2007Q4

REPORT INFORMATION
  Report Type: 
  Country: None (occurrence: None)
  Receive Date: 20071112
  Receipt Date: 20070122
  Transmission Date: 20080405
  Serious: No
  Sender: FDA-Public Use
  Company Number: A0636508A

PATIENT
  Sex: Female

DRUGS (8)
  1. AVANDAMET [Suspect]
     Route: 048
     Dates: start: 20060101
  2. CIMETIDINE [Concomitant]
  3. FOLIC ACID [Concomitant]
  4. CELEXA [Concomitant]
  5. DYAZIDE [Concomitant]
  6. ULTRAM [Concomitant]
  7. TYLENOL [Concomitant]
  8. IBUPROFEN [Concomitant]

REACTIONS (2)
  - DRUG ADMINISTRATION ERROR [None]
  - DRUG INEFFECTIVE [None]
